FAERS Safety Report 25527064 (Version 1)
Quarter: 2025Q3

REPORT INFORMATION
  Report Type: Spontaneous
  Country: US (occurrence: US)
  Receive Date: 20250708
  Receipt Date: 20250708
  Transmission Date: 20251021
  Serious: No
  Sender: ACCORD
  Company Number: US-Accord-451147

PATIENT
  Sex: Male

DRUGS (2)
  1. LEUPROLIDE [Suspect]
     Active Substance: LEUPROLIDE
     Indication: Prostate cancer
     Dates: start: 20240906
  2. LEUPROLIDE [Suspect]
     Active Substance: LEUPROLIDE
     Indication: Prostate cancer
     Dates: start: 20240906

REACTIONS (8)
  - Chest pain [Unknown]
  - Headache [Unknown]
  - Hyperhidrosis [Unknown]
  - Hot flush [Unknown]
  - Dizziness [Unknown]
  - Heart rate increased [Recovered/Resolved]
  - Blood pressure increased [Recovered/Resolved]
  - Pain [Unknown]
